FAERS Safety Report 9675926 (Version 2)
Quarter: 2014Q3

REPORT INFORMATION
  Report Type: Spontaneous
  Country: US (occurrence: None)
  Receive Date: 20131105
  Receipt Date: 20140729
  Transmission Date: 20150326
  Serious: Yes (Hospitalization)
  Sender: FDA-Public Use
  Company Number: 1713747-2013-99972

PATIENT
  Age: 55 Year
  Sex: Male
  Weight: 108.9 kg

DRUGS (3)
  1. LIBERTY CYCLER [Concomitant]
     Active Substance: DEVICE
  2. LIBERTY CYCLER SET MEDICATIONS [Concomitant]
  3. DEXTROSE. [Suspect]
     Active Substance: DEXTROSE
     Indication: PERITONEAL DIALYSIS
     Dates: start: 20131006

REACTIONS (4)
  - Fluid retention [None]
  - Peritoneal dialysis complication [None]
  - Coronary artery occlusion [None]
  - Myocardial infarction [None]

NARRATIVE: CASE EVENT DATE: 20131021
